FAERS Safety Report 9424325 (Version 1)
Quarter: 2013Q3

REPORT INFORMATION
  Report Type: Spontaneous
  Country: AU (occurrence: AU)
  Receive Date: 20130729
  Receipt Date: 20130729
  Transmission Date: 20140515
  Serious: Yes (Hospitalization, Other)
  Sender: FDA-Public Use
  Company Number: AU-MYLANLABS-2013S1015787

PATIENT
  Sex: Male

DRUGS (2)
  1. ABISART HCT [Suspect]
     Indication: BLOOD PRESSURE
     Route: 048
     Dates: start: 201305
  2. ABISART HCT [Suspect]
     Indication: BLOOD PRESSURE
     Route: 048
     Dates: start: 201305

REACTIONS (2)
  - Cerebrovascular accident [Recovered/Resolved]
  - Product substitution issue [Recovered/Resolved]
